FAERS Safety Report 10810054 (Version 1)
Quarter: 2015Q1

REPORT INFORMATION
  Report Type: Report from Study
  Country: US (occurrence: US)
  Receive Date: 20150217
  Receipt Date: 20150217
  Transmission Date: 20150721
  Serious: No
  Sender: FDA-Public Use
  Company Number: US-ABBVIE-14K-163-1215561-00

PATIENT
  Age: 35 Year
  Sex: Female

DRUGS (5)
  1. CIPROFLOXACIN. [Concomitant]
     Active Substance: CIPROFLOXACIN
     Indication: FISTULA
  2. PREDNISONE. [Concomitant]
     Active Substance: PREDNISONE
     Indication: EYE INFLAMMATION
     Dosage: ONE DROP DAILY TO RIGHT EYE AND 4 DROP 4 TIMES DAILY TO LEFT EYE
  3. UCERIS [Concomitant]
     Active Substance: BUDESONIDE
     Indication: CROHN^S DISEASE
     Dosage: ER
  4. HUMIRA [Suspect]
     Active Substance: ADALIMUMAB
     Indication: CROHN^S DISEASE
     Dosage: DAY ONE:FOUR 40 MG INJECTIONS
     Dates: start: 20140318, end: 20140318
  5. HUMIRA [Suspect]
     Active Substance: ADALIMUMAB
     Dates: start: 2014

REACTIONS (3)
  - Incorrect dose administered [Unknown]
  - Injection site pain [Not Recovered/Not Resolved]
  - Injection site haemorrhage [Recovered/Resolved]

NARRATIVE: CASE EVENT DATE: 20140318
